FAERS Safety Report 7532493 (Version 2)
Quarter: 2013Q2

REPORT INFORMATION
  Report Type: Spontaneous
  Country: US (occurrence: US)
  Receive Date: 20100806
  Receipt Date: 20130621
  Transmission Date: 20140414
  Serious: Yes (Other)
  Sender: FDA-Public Use
  Company Number: US-PFIZER INC-2009171806

PATIENT
  Sex: Male

DRUGS (1)
  1. DILANTIN-125 [Suspect]
     Dosage: UNK

REACTIONS (1)
  - Stevens-Johnson syndrome [Unknown]
